FAERS Safety Report 8969066 (Version 1)
Quarter: 2012Q4

REPORT INFORMATION
  Report Type: 
  Country: US (occurrence: US)
  Receive Date: 20121218
  Receipt Date: 20121218
  Transmission Date: 20130627
  Serious: No
  Sender: FDA-Public Use
  Company Number: US-BRISTOL-MYERS SQUIBB COMPANY-16706814

PATIENT
  Age: 37 Year
  Sex: Male

DRUGS (11)
  1. ABILIFY [Suspect]
  2. GEODON [Suspect]
     Dosage: qhs
     Route: 048
     Dates: start: 201011
  3. RISPERIDONE [Suspect]
  4. ZYPREXA [Suspect]
  5. LITHIUM [Suspect]
  6. NAMENDA [Concomitant]
  7. CYMBALTA [Concomitant]
  8. XANAX [Concomitant]
  9. LAMICTAL [Concomitant]
  10. ADDERALL [Concomitant]
  11. INDERAL [Concomitant]

REACTIONS (2)
  - Asthenia [Unknown]
  - Somnolence [Unknown]
